FAERS Safety Report 8037582-7 (Version None)
Quarter: 2011Q4

REPORT INFORMATION
  Report Type: 
  Country: None (occurrence: None)
  Receive Date: 20111202
  Receipt Date: 20110705
  Transmission Date: 20120403
  Serious: Yes (Other)
  Sender: FDA-Public Use
  Company Number: WAES 1107USA00915

PATIENT
  Age: 67 Year
  Sex: Female

DRUGS (3)
  1. PREDNISONE [Concomitant]
  2. FOSAMAX [Suspect]
     Indication: OSTEOPENIA
     Dosage: PO
     Route: 048
  3. RECLAST [Suspect]
     Indication: OSTEOPOROSIS
     Dosage: 1 DOSE/IV
     Route: 042

REACTIONS (1)
  - OSTEONECROSIS OF JAW [None]
